FAERS Safety Report 8041462-0 (Version None)
Quarter: 2012Q1

REPORT INFORMATION
  Report Type: 
  Country: None (occurrence: None)
  Receive Date: 20120112
  Receipt Date: 20120105
  Transmission Date: 20120608
  Serious: Yes (Hospitalization, Other)
  Sender: FDA-Public Use
  Company Number: JP-PFIZER INC-2011314089

PATIENT
  Age: 83 Year
  Sex: Female

DRUGS (6)
  1. VANCOMYCIN [Suspect]
     Indication: STAPHYLOCOCCAL INFECTION
     Dosage: 0.5 MG, UNK
     Route: 042
     Dates: start: 20111025, end: 20111027
  2. XYZAL [Suspect]
     Indication: PRURITUS GENERALISED
     Dosage: 2.5 MG/ DAY
     Route: 048
     Dates: start: 20111026, end: 20111028
  3. NICORANDIL [Suspect]
     Indication: ANGINA PECTORIS
     Dosage: UNKNOWN
     Route: 048
     Dates: start: 20111027
  4. CEFAZOLIN SODIUM [Suspect]
     Dosage: 3 G, UNK
     Route: 048
     Dates: start: 20111027, end: 20111105
  5. MAXIPIME [Suspect]
     Indication: ESCHERICHIA INFECTION
     Dosage: UNKNOWN
     Route: 042
     Dates: start: 20111022, end: 20111027
  6. OLOPATADINE HYDROCHLORIDE [Suspect]
     Dosage: UNK
     Dates: start: 20111024, end: 20111026

REACTIONS (5)
  - APHASIA [None]
  - METABOLIC ENCEPHALOPATHY [None]
  - RENAL FAILURE [None]
  - COMMUNICATION DISORDER [None]
  - ALTERED STATE OF CONSCIOUSNESS [None]
